FAERS Safety Report 14374027 (Version 1)
Quarter: 2018Q1

REPORT INFORMATION
  Report Type: Report from Study
  Country: None (occurrence: AT)
  Receive Date: 20180111
  Receipt Date: 20180111
  Transmission Date: 20180509
  Serious: Yes (Hospitalization)
  Sender: FDA-Public Use
  Company Number: AT-ABBVIE-18K-009-2218271-00

PATIENT
  Age: 26 Year
  Sex: Female

DRUGS (2)
  1. SALOFALK [Concomitant]
     Active Substance: MESALAMINE
     Indication: PRODUCT USED FOR UNKNOWN INDICATION
  2. HUMIRA [Suspect]
     Active Substance: ADALIMUMAB
     Indication: CROHN^S DISEASE
     Route: 058
     Dates: start: 20171114

REACTIONS (3)
  - Intestinal perforation [Recovering/Resolving]
  - Frequent bowel movements [Unknown]
  - Abdominal pain [Unknown]

NARRATIVE: CASE EVENT DATE: 201712
